FAERS Safety Report 6642232-8 (Version None)
Quarter: 2010Q1

REPORT INFORMATION
  Report Type: 
  Country: None (occurrence: None)
  Receive Date: 20100319
  Receipt Date: 20100311
  Transmission Date: 20100710
  Serious: Yes (Hospitalization)
  Sender: FDA-Public Use
  Company Number: US-ASTRAZENECA-2010SE10719

PATIENT
  Age: 20 Year
  Sex: Female
  Weight: 81.6 kg

DRUGS (5)
  1. SEROQUEL [Suspect]
     Indication: BIPOLAR DISORDER
     Route: 048
     Dates: start: 20030101
  2. SYNTHROID [Concomitant]
     Indication: HYPOTHYROIDISM
     Dosage: DAILY.
     Route: 048
  3. LAMICTAL CD [Concomitant]
     Dosage: DAILY.
     Route: 048
  4. LUVOX [Concomitant]
     Dosage: DAILY.
     Route: 048
  5. BENZTROPINE MESYLATE [Concomitant]
     Dosage: DAILY.
     Route: 048

REACTIONS (2)
  - MUSCLE RIGIDITY [None]
  - PARALYSIS [None]
